FAERS Safety Report 4726099-0 (Version None)
Quarter: 2005Q3

REPORT INFORMATION
  Report Type: 
  Country: None (occurrence: None)
  Receive Date: 20050726
  Receipt Date: 20050726
  Transmission Date: 20060218
  Serious: Yes (Hospitalization)
  Sender: FDA-Public Use
  Company Number: None

PATIENT
  Age: 73 Year
  Sex: Male
  Weight: 83 kg

DRUGS (19)
  1. WARFARIN 5 MG TAB [Suspect]
     Indication: DEEP VEIN THROMBOSIS
     Dosage: SEE IMAGE
  2. GATIFLOXACIN [Suspect]
     Indication: RESPIRATORY TRACT INFECTION
     Dosage: 400 MG QD ORAL
     Route: 048
     Dates: start: 20040727, end: 20040730
  3. ALENDRONATE [Concomitant]
  4. HYDROXYZINE [Concomitant]
  5. REGULAR/NPH INSULIN [Concomitant]
  6. NICOTINE PATCHE [Concomitant]
  7. FENTANYL [Concomitant]
  8. PREDNISONE [Concomitant]
  9. LASIX [Concomitant]
  10. DOCUSATE [Concomitant]
  11. ZANTAC [Concomitant]
  12. EPOGEN [Concomitant]
  13. LEVOTHYROXINE SODIUM [Concomitant]
  14. THALIDOMIDE [Concomitant]
  15. FLUNISOLIDE INHALER [Concomitant]
  16. ALBUTEROL [Concomitant]
  17. PERCOCET [Concomitant]
  18. ROBITUSSIN AC [Concomitant]
  19. SORBITOL [Concomitant]

REACTIONS (14)
  - ABDOMINAL PAIN [None]
  - CHEST PAIN [None]
  - COUGH [None]
  - DECREASED APPETITE [None]
  - DEHYDRATION [None]
  - DYSPNOEA [None]
  - FATIGUE [None]
  - HAEMATOCRIT DECREASED [None]
  - HAEMOGLOBIN DECREASED [None]
  - HYPERKALAEMIA [None]
  - INTERNATIONAL NORMALISED RATIO DECREASED [None]
  - NAUSEA [None]
  - RENAL FAILURE ACUTE [None]
  - VOMITING [None]
